FAERS Safety Report 18202316 (Version 1)
Quarter: 2020Q3

REPORT INFORMATION
  Report Type: Spontaneous
  Country: FR (occurrence: FR)
  Receive Date: 20200827
  Receipt Date: 20200827
  Transmission Date: 20201103
  Serious: Yes (Hospitalization)
  Sender: FDA-Public Use
  Company Number: FR-ACCORD-197574

PATIENT
  Age: 73 Year
  Sex: Male
  Weight: 69 kg

DRUGS (5)
  1. DOXORUBICIN [Suspect]
     Active Substance: DOXORUBICIN
     Indication: TRANSITIONAL CELL CARCINOMA
     Dates: start: 20200506, end: 20200626
  2. METHOTREXATE. [Suspect]
     Active Substance: METHOTREXATE
     Indication: TRANSITIONAL CELL CARCINOMA
     Dates: start: 20200506, end: 20200626
  3. VINBLASTINE [Suspect]
     Active Substance: VINBLASTINE
     Indication: TRANSITIONAL CELL CARCINOMA
     Dates: start: 20200506, end: 20200626
  4. CISPLATIN. [Suspect]
     Active Substance: CISPLATIN
     Indication: TRANSITIONAL CELL CARCINOMA
     Dates: start: 20200506, end: 20200626
  5. CLOXACILLIN [Suspect]
     Active Substance: CLOXACILLIN
     Indication: ENDOCARDITIS
     Dates: start: 20200710, end: 20200730

REACTIONS (2)
  - Anaemia [Not Recovered/Not Resolved]
  - Thrombocytopenia [Not Recovered/Not Resolved]

NARRATIVE: CASE EVENT DATE: 20200706
